FAERS Safety Report 4438743-6 (Version None)
Quarter: 2004Q3

REPORT INFORMATION
  Report Type: 
  Country: None (occurrence: None)
  Receive Date: 20040830
  Receipt Date: 20040816
  Transmission Date: 20050211
  Serious: Yes (Hospitalization)
  Sender: FDA-Public Use
  Company Number: S04-USA-05597-01

PATIENT
  Age: 80 Year
  Sex: Female

DRUGS (12)
  1. NAMENDA [Suspect]
     Indication: DEMENTIA ALZHEIMER'S TYPE
     Dosage: 10 MG BID PO
     Route: 048
     Dates: start: 20040701
  2. NAMENDA [Suspect]
     Indication: DEMENTIA ALZHEIMER'S TYPE
     Dosage: 5 MG QD PO
     Route: 048
     Dates: start: 20040610, end: 20040616
  3. NAMENDA [Suspect]
     Indication: DEMENTIA ALZHEIMER'S TYPE
     Dosage: 5 MG BID PO
     Route: 048
     Dates: start: 20040617, end: 20040623
  4. NAMENDA [Suspect]
     Indication: DEMENTIA ALZHEIMER'S TYPE
     Dosage: 15 MG QD PO
     Route: 048
     Dates: start: 20040624, end: 20040630
  5. AGGRENOX [Suspect]
     Dates: start: 20010101
  6. LISINOPRIL [Concomitant]
  7. CALCIUM [Concomitant]
  8. POTASSIUM CHLORIDE [Concomitant]
  9. TOLTERODINE [Concomitant]
  10. NIFEDIPINE [Concomitant]
  11. ZOLOFT [Concomitant]
  12. REGLAN [Concomitant]

REACTIONS (25)
  - ACTIVATED PARTIAL THROMBOPLASTIN TIME PROLONGED [None]
  - ACTIVITIES OF DAILY LIVING IMPAIRED [None]
  - ANOREXIA [None]
  - ASTHENIA [None]
  - BALANCE DISORDER [None]
  - BLOOD SODIUM DECREASED [None]
  - DEEP VEIN THROMBOSIS [None]
  - DEHYDRATION [None]
  - DIVERTICULUM [None]
  - DIZZINESS [None]
  - FAECAL OCCULT BLOOD POSITIVE [None]
  - FEELING ABNORMAL [None]
  - GASTROINTESTINAL HAEMORRHAGE [None]
  - HYPERTENSION [None]
  - IRON DEFICIENCY [None]
  - MENTAL STATUS CHANGES [None]
  - MESENTERIC VEIN THROMBOSIS [None]
  - NAUSEA [None]
  - NORMOCHROMIC NORMOCYTIC ANAEMIA [None]
  - OEDEMA PERIPHERAL [None]
  - PITTING OEDEMA [None]
  - PROTHROMBIN TIME PROLONGED [None]
  - RASH [None]
  - URINARY INCONTINENCE [None]
  - URINARY TRACT INFECTION [None]
